FAERS Safety Report 6203842-5 (Version None)
Quarter: 2009Q2

REPORT INFORMATION
  Report Type: 
  Country: None (occurrence: None)
  Receive Date: 20090527
  Receipt Date: 20090522
  Transmission Date: 20091009
  Serious: Yes (Other)
  Sender: FDA-Public Use
  Company Number: US-PFIZER INC-2009216775

PATIENT
  Sex: Female
  Weight: 61.678 kg

DRUGS (24)
  1. NAPROXEN [Suspect]
     Indication: ARTHRITIS
     Dosage: UNK
     Route: 048
     Dates: start: 20070508
  2. BLINDED *PLACEBO [Suspect]
     Indication: ARTHRITIS
     Dosage: UNK
     Route: 048
     Dates: start: 20070508
  3. BLINDED CELECOXIB [Suspect]
     Indication: ARTHRITIS
     Dosage: UNK
     Route: 048
     Dates: start: 20070508
  4. IBUPROFEN [Suspect]
     Indication: ARTHRITIS
     Dosage: UNK
     Route: 048
     Dates: start: 20070508
  5. NAPROXEN [Suspect]
     Dosage: UNK
     Route: 048
     Dates: start: 20070508
  6. NAPROXEN [Suspect]
     Dosage: UNK
     Dates: start: 20081230
  7. BLINDED *PLACEBO [Suspect]
     Dosage: UNK
     Dates: start: 20081230
  8. BLINDED CELECOXIB [Suspect]
     Dosage: UNK
     Dates: start: 20081230
  9. IBUPROFEN [Suspect]
     Dosage: UNK
     Dates: start: 20081230
  10. NAPROXEN [Suspect]
     Dosage: UNK
     Dates: start: 20081230
  11. NEXIUM [Concomitant]
     Dosage: 40 MG, 1X/DAY
     Route: 048
     Dates: start: 20070508
  12. CALCIUM WITH VITAMIN D [Concomitant]
     Dosage: 600 MG, UNK
     Route: 048
     Dates: start: 20050101
  13. ZETIA [Concomitant]
     Dosage: 10 MG, UNK
     Dates: start: 20060405
  14. VALTREX [Concomitant]
     Dosage: 500 MG, 1X/DAY
     Route: 048
     Dates: start: 20020425
  15. VALTREX [Concomitant]
     Dosage: 1 G, AS NEEDED
     Route: 048
     Dates: start: 20000423
  16. LIBRIUM [Concomitant]
     Dosage: 10 MG, AS NEEDED
     Route: 048
     Dates: start: 19870405
  17. LASIX [Concomitant]
     Dosage: 40 MG, AS NEEDED
     Route: 048
     Dates: start: 20040405
  18. MENTAX [Concomitant]
     Dosage: UNK
     Route: 048
     Dates: start: 20070405
  19. COLACE [Concomitant]
     Dosage: UNK
     Route: 048
     Dates: start: 20060405
  20. LOTREL [Concomitant]
     Dosage: 5/20 MG
     Route: 048
     Dates: start: 20081110
  21. FISH OIL [Concomitant]
     Dosage: 1000 MG, UNK
     Route: 048
     Dates: start: 20080109
  22. ESTRADIOL [Concomitant]
     Dosage: 0.5 MG, 1X/DAY
     Route: 048
  23. ACETYLSALICYLIC ACID [Concomitant]
     Dosage: 81 MG, 1X/DAY
     Route: 048
  24. GLUCOSAMINE [Concomitant]
     Dosage: 1 A DAY

REACTIONS (1)
  - ENTEROCELE [None]
